FAERS Safety Report 5968622-4 (Version None)
Quarter: 2008Q4

REPORT INFORMATION
  Report Type: 
  Country: None (occurrence: None)
  Receive Date: 20081121
  Receipt Date: 20081121
  Transmission Date: 20090506
  Serious: Yes (Hospitalization)
  Sender: FDA-Public Use
  Company Number: None

PATIENT
  Age: 47 Year
  Sex: Male

DRUGS (1)
  1. NEULASTA [Suspect]

REACTIONS (7)
  - ASTHENIA [None]
  - BLOOD MAGNESIUM DECREASED [None]
  - FATIGUE [None]
  - FLUID INTAKE REDUCED [None]
  - LEUKOCYTOSIS [None]
  - NAUSEA [None]
  - VOMITING [None]
